FAERS Safety Report 19820716 (Version 1)
Quarter: 2021Q3

REPORT INFORMATION
  Report Type: Spontaneous
  Country: US (occurrence: US)
  Receive Date: 20210912
  Receipt Date: 20210912
  Transmission Date: 20211014
  Serious: No
  Sender: FDA-Public Use
  Company Number: None

PATIENT
  Age: 66 Year
  Sex: Male
  Weight: 101.25 kg

DRUGS (7)
  1. NITROFUR [Concomitant]
     Active Substance: NITROFURANTOIN
  2. ATORVASTATIN [Concomitant]
     Active Substance: ATORVASTATIN
  3. FLOMAX [Concomitant]
     Active Substance: TAMSULOSIN HYDROCHLORIDE
  4. DULOXETINE. [Concomitant]
     Active Substance: DULOXETINE
  5. METFORMIN [Concomitant]
     Active Substance: METFORMIN HYDROCHLORIDE
  6. VITAMIN C [Concomitant]
     Active Substance: ASCORBIC ACID
  7. XARELTO [Suspect]
     Active Substance: RIVAROXABAN
     Indication: THROMBOSIS PROPHYLAXIS
     Dosage: ?          QUANTITY:1 TABLET(S);?
     Route: 048
     Dates: start: 20210729, end: 20210912

REACTIONS (1)
  - Chromaturia [None]

NARRATIVE: CASE EVENT DATE: 20210729
